FAERS Safety Report 17922854 (Version 2)
Quarter: 2020Q4

REPORT INFORMATION
  Report Type: Spontaneous
  Country: US (occurrence: US)
  Receive Date: 20200622
  Receipt Date: 20201210
  Transmission Date: 20210113
  Serious: Yes (Other)
  Sender: FDA-Public Use
  Company Number: US-GILEAD-2020-0474041

PATIENT
  Age: 33 Year
  Sex: Male

DRUGS (1)
  1. COMPLERA [Suspect]
     Active Substance: EMTRICITABINE\RILPIVIRINE HYDROCHLORIDE\TENOFOVIR DISOPROXIL FUMARATE
     Indication: HIV INFECTION
     Dosage: UNK
     Route: 048
     Dates: start: 201105

REACTIONS (5)
  - Lower limb fracture [Recovered/Resolved]
  - Tooth loss [Unknown]
  - Bone density decreased [Unknown]
  - Ankle fracture [Recovered/Resolved]
  - Fracture [Unknown]

NARRATIVE: CASE EVENT DATE: 202002
